FAERS Safety Report 6448000-4 (Version None)
Quarter: 2009Q4

REPORT INFORMATION
  Report Type: 
  Country: None (occurrence: None)
  Receive Date: 20091120
  Receipt Date: 20091111
  Transmission Date: 20100525
  Serious: Yes (Hospitalization)
  Sender: FDA-Public Use
  Company Number: JP-ROCHE-643326

PATIENT
  Age: 80 Year
  Sex: Female

DRUGS (3)
  1. XELODA [Suspect]
     Indication: BREAST CANCER
     Dosage: 3 WEEKS ADMINISTRATION FOLLOWED BY 1 WEEK REST.
     Route: 048
     Dates: start: 20090301, end: 20090701
  2. ALENDRONATE SODIUM [Concomitant]
     Dosage: DRUG NAME: FOSAMAC
     Route: 048
  3. ASPARA-CA [Concomitant]
     Route: 048

REACTIONS (1)
  - DECUBITUS ULCER [None]
